FAERS Safety Report 16491293 (Version 2)
Quarter: 2019Q3

REPORT INFORMATION
  Report Type: Spontaneous
  Country: NL (occurrence: NL)
  Receive Date: 20190628
  Receipt Date: 20190903
  Transmission Date: 20191004
  Serious: Yes (Hospitalization)
  Sender: FDA-Public Use
  Company Number: NL-TEVA-2019-NL-1069734

PATIENT
  Age: 32 Year
  Sex: Female
  Weight: 70 kg

DRUGS (1)
  1. PROMETHAZINE [Suspect]
     Active Substance: PROMETHAZINE HYDROCHLORIDE
     Indication: INSOMNIA
     Dosage: 1D1 (HOWEVER PATIENT TOOK 3 TABLETS)
     Dates: start: 20190606, end: 20190609

REACTIONS (6)
  - Confusional state [Recovering/Resolving]
  - Intentional self-injury [Recovering/Resolving]
  - Off label use [Unknown]
  - Overdose [Unknown]
  - Hallucination [Recovering/Resolving]
  - Exposure during pregnancy [Recovering/Resolving]

NARRATIVE: CASE EVENT DATE: 20190608
